FAERS Safety Report 9938798 (Version 1)
Quarter: 2014Q1

REPORT INFORMATION
  Report Type: Report from Study
  Country: US (occurrence: US)
  Receive Date: 20140303
  Receipt Date: 20140303
  Transmission Date: 20141002
  Serious: No
  Sender: FDA-Public Use
  Company Number: US-ABBVIE-13P-163-1033333-00

PATIENT
  Age: 35 Year
  Sex: Male

DRUGS (7)
  1. HUMIRA [Suspect]
     Indication: CROHN^S DISEASE
     Dates: start: 201210
  2. ASACOL [Concomitant]
     Indication: CROHN^S DISEASE
     Dosage: DAILY
     Dates: start: 201207
  3. DEXILANT [Concomitant]
     Indication: GASTROOESOPHAGEAL REFLUX DISEASE
     Dosage: DAILY
  4. LOVAZA [Concomitant]
     Indication: BLOOD TRIGLYCERIDES INCREASED
  5. ZOFRAN [Concomitant]
     Indication: NAUSEA
  6. PHENERGAN [Concomitant]
     Indication: NAUSEA
  7. ULTRAM [Concomitant]
     Indication: PAIN

REACTIONS (1)
  - Skin disorder [Recovering/Resolving]
